FAERS Safety Report 17044600 (Version 1)
Quarter: 2019Q4

REPORT INFORMATION
  Report Type: Report from Study
  Country: IT (occurrence: IT)
  Receive Date: 20191118
  Receipt Date: 20191118
  Transmission Date: 20200122
  Serious: Yes (Other)
  Sender: FDA-Public Use
  Company Number: IT-PFIZER INC-2019492915

PATIENT
  Age: 89 Year
  Sex: Female

DRUGS (6)
  1. QUETIAPINE FUMARATE. [Suspect]
     Active Substance: QUETIAPINE FUMARATE
     Indication: AGITATION
     Dosage: 100 MG TOTAL
     Route: 048
     Dates: start: 20190902, end: 20190903
  2. AMLODIPINE BESILATE [Suspect]
     Active Substance: AMLODIPINE BESYLATE
     Indication: HYPERTENSION
     Dosage: 5 MG, 1X/DAY
     Route: 048
  3. TALOFEN [Suspect]
     Active Substance: PROMAZINE HYDROCHLORIDE
     Indication: SEDATION
     Dosage: 5 GTT TOTAL
     Route: 048
     Dates: start: 20190902, end: 20190903
  4. TAVOR (LORAZEPAM) [Suspect]
     Active Substance: LORAZEPAM
     Indication: SEDATION
     Dosage: 2.5 MG, 1X/DAY
     Route: 048
     Dates: start: 20190902, end: 20190903
  5. LASIX [Concomitant]
     Active Substance: FUROSEMIDE
     Dosage: 1.5 DF, UNK
     Route: 048
  6. HALDOL [Suspect]
     Active Substance: HALOPERIDOL
     Indication: SEDATION
     Dosage: 10 GTT TOTAL
     Route: 048
     Dates: start: 20190902, end: 20190903

REACTIONS (5)
  - Vasculitis [Recovering/Resolving]
  - Depressed level of consciousness [Recovering/Resolving]
  - Sedation [Recovering/Resolving]
  - Oedema peripheral [Recovering/Resolving]
  - Overdose [Recovering/Resolving]

NARRATIVE: CASE EVENT DATE: 20190903
